FAERS Safety Report 18499681 (Version 2)
Quarter: 2020Q4

REPORT INFORMATION
  Report Type: Spontaneous
  Country: JP (occurrence: JP)
  Receive Date: 20201113
  Receipt Date: 20201120
  Transmission Date: 20210114
  Serious: Yes (Hospitalization)
  Sender: FDA-Public Use
  Company Number: JP-ASTRAZENECA-2020SF47435

PATIENT
  Age: 93 Year
  Sex: Female

DRUGS (7)
  1. MAGNESIUM OXIDE. [Concomitant]
     Active Substance: MAGNESIUM OXIDE
     Dosage: DOSE UNKNOWN
     Route: 065
  2. AMITIZA [Concomitant]
     Active Substance: LUBIPROSTONE
     Dosage: DOSE UNKNOWN
     Route: 065
  3. NEXIUM [Suspect]
     Active Substance: ESOMEPRAZOLE MAGNESIUM
     Dosage: UNKNOWN DOSE AND FREQUENCY
     Route: 048
     Dates: end: 20201105
  4. DILTIAZEM HYDROCHLORIDE. [Concomitant]
     Active Substance: DILTIAZEM HYDROCHLORIDE
     Dosage: DOSE UNKNOWN
     Route: 048
  5. CELECOXIB. [Concomitant]
     Active Substance: CELECOXIB
     Dosage: DOSE UNKNOWN
     Route: 065
  6. LUNESTA [Concomitant]
     Active Substance: ESZOPICLONE
     Dosage: DOSE UNKNOWN
     Route: 065
  7. VESICARE [Concomitant]
     Active Substance: SOLIFENACIN SUCCINATE
     Dosage: DOSE UNKNOWN
     Route: 048

REACTIONS (3)
  - Pneumonia aspiration [Unknown]
  - Spinal compression fracture [Unknown]
  - Dysphagia [Unknown]

NARRATIVE: CASE EVENT DATE: 20201105
